FAERS Safety Report 4826234-X (Version None)
Quarter: 2005Q4

REPORT INFORMATION
  Report Type: 
  Country: None (occurrence: None)
  Receive Date: 20051109
  Receipt Date: 20051109
  Transmission Date: 20060501
  Serious: Yes (Hospitalization)
  Sender: FDA-Public Use
  Company Number: None

PATIENT
  Age: 75 Year
  Sex: Male
  Weight: 76 kg

DRUGS (1)
  1. GATIFLOXACIN [Suspect]
     Indication: LUNG DISORDER
     Dosage: 400 MG PO DAILY[ 4 DOSES]
     Route: 048

REACTIONS (1)
  - HYPERGLYCAEMIA [None]
